FAERS Safety Report 6473677 (Version 14)
Quarter: 2012Q4

REPORT INFORMATION
  Report Type: 
  Country: US (occurrence: US)
  Receive Date: 20071121
  Receipt Date: 20121227
  Transmission Date: 20130627
  Serious: Yes (Congenital Anomaly, Other)
  Sender: FDA-Public Use
  Company Number: US-PFIZER INC-2007095375

PATIENT
  Sex: Male
  Weight: 3 kg

DRUGS (11)
  1. ZOLOFT [Suspect]
     Indication: POSTPARTUM DEPRESSION
     Dosage: 100 mg, 1x/day
     Route: 064
     Dates: start: 200409
  2. ZOLOFT [Suspect]
     Indication: ANXIETY
     Dosage: UNK
     Route: 064
     Dates: start: 20050207, end: 20050622
  3. ZOLOFT [Suspect]
     Dosage: 100 mg, 1x/day
     Route: 064
     Dates: start: 20050426
  4. PRENATAL VITAMINS [Concomitant]
     Dosage: UNK
     Route: 064
  5. TYLENOL [Concomitant]
     Dosage: UNK
     Route: 064
  6. BACTRIM [Concomitant]
     Dosage: UNK
     Route: 064
  7. IRON [Concomitant]
     Dosage: UNK
     Route: 064
  8. CEPHALEXIN [Concomitant]
     Dosage: UNK
     Route: 064
  9. MACROBID [Concomitant]
     Dosage: UNK
     Route: 064
  10. AZITHROMYCIN [Concomitant]
     Dosage: UNK
     Route: 064
  11. IBUPROFEN [Concomitant]
     Dosage: UNK
     Route: 064

REACTIONS (18)
  - Foetal exposure during pregnancy [Unknown]
  - Fallot^s tetralogy [Unknown]
  - Developmental delay [Unknown]
  - Dyspnoea [Unknown]
  - Pulmonary artery stenosis congenital [Unknown]
  - Respiratory disorder [Not Recovered/Not Resolved]
  - Laryngeal stenosis [Unknown]
  - Gastrooesophageal reflux disease [Not Recovered/Not Resolved]
  - Deafness [Unknown]
  - Vocal cord disorder [Unknown]
  - Aspiration tracheal [Recovered/Resolved]
  - Weight gain poor [Unknown]
  - Croup infectious [Not Recovered/Not Resolved]
  - Pulmonary air leakage [Unknown]
  - Aphasia [Unknown]
  - Failure to thrive [Unknown]
  - Dysphagia [Unknown]
  - Productive cough [Unknown]
